FAERS Safety Report 19067413 (Version 3)
Quarter: 2021Q2

REPORT INFORMATION
  Report Type: Report from Study
  Country: BR (occurrence: BR)
  Receive Date: 20210329
  Receipt Date: 20210602
  Transmission Date: 20210717
  Serious: Yes (Hospitalization, Other)
  Sender: FDA-Public Use
  Company Number: NVSC2021BR067223

PATIENT
  Age: 48 Year
  Sex: Female

DRUGS (5)
  1. KISQALI [Suspect]
     Active Substance: RIBOCICLIB
     Indication: BREAST CANCER
     Dosage: 3 DF, QD
     Route: 065
     Dates: start: 20210226
  2. PREDNISONE. [Concomitant]
     Active Substance: PREDNISONE
     Dosage: 60 MG, QD (IN USE)
     Route: 065
  3. PREDNISONE. [Concomitant]
     Active Substance: PREDNISONE
     Indication: HYPERSENSITIVITY
     Dosage: 20 MG
     Route: 065
  4. KISQALI [Suspect]
     Active Substance: RIBOCICLIB
     Dosage: 3 DF, QD (DURING 21 DAYS AND PAUSE OF 7)
     Route: 065
     Dates: start: 20210226
  5. VITAMIN D [Concomitant]
     Active Substance: VITAMIN D NOS
     Indication: PRODUCT USED FOR UNKNOWN INDICATION
     Dosage: IN USE
     Route: 065

REACTIONS (14)
  - Post procedural inflammation [Unknown]
  - Mobility decreased [Recovered/Resolved]
  - Metastases to lung [Unknown]
  - Drug interaction [Unknown]
  - Asthenia [Unknown]
  - Paraneoplastic dermatomyositis [Not Recovered/Not Resolved]
  - Burning sensation [Unknown]
  - Breast inflammation [Recovering/Resolving]
  - Gait disturbance [Recovered/Resolved]
  - Hypersensitivity [Unknown]
  - Pruritus [Unknown]
  - Dysstasia [Recovered/Resolved]
  - Skin fissures [Unknown]
  - Nausea [Unknown]

NARRATIVE: CASE EVENT DATE: 20210314
